FAERS Safety Report 6274038-6 (Version None)
Quarter: 2009Q3

REPORT INFORMATION
  Report Type: 
  Country: None (occurrence: None)
  Receive Date: 20090716
  Receipt Date: 20090630
  Transmission Date: 20100115
  Serious: Yes (Hospitalization)
  Sender: FDA-Public Use
  Company Number: 20099BI020780

PATIENT
  Age: 69 Year
  Sex: Male

DRUGS (8)
  1. ZEVALIN [Suspect]
     Indication: B-CELL LYMPHOMA
     Dosage: 1X; IV
     Route: 042
     Dates: start: 20090615, end: 20090615
  2. RITUXIMAB [Concomitant]
  3. LOMUSTINE [Concomitant]
  4. ETOPOSIDE [Concomitant]
  5. CHOLRAMBUCIL [Concomitant]
  6. PREDNISONE [Concomitant]
  7. BENZBRAMERON [Concomitant]
  8. METOPROLOL TARTRATE [Concomitant]

REACTIONS (5)
  - APHASIA [None]
  - ATRIAL FIBRILLATION [None]
  - CEREBROVASCULAR ACCIDENT [None]
  - DYSARTHRIA [None]
  - PARESIS [None]
